FAERS Safety Report 8985093 (Version 1)
Quarter: 2012Q4

REPORT INFORMATION
  Report Type: 
  Country: BR (occurrence: BR)
  Receive Date: 20121226
  Receipt Date: 20121226
  Transmission Date: 20130627
  Serious: Yes (Hospitalization, Other)
  Sender: FDA-Public Use
  Company Number: PHHY2012BR119165

PATIENT
  Sex: Female
  Weight: 75 kg

DRUGS (2)
  1. EXJADE [Suspect]
     Indication: IRON OVERLOAD
  2. ERYTHROPOETIN [Concomitant]
     Dosage: 4000 U, UNK

REACTIONS (6)
  - Metastatic gastric cancer [Unknown]
  - Metastases to peritoneum [Unknown]
  - Metastases to ovary [Unknown]
  - Vision blurred [Unknown]
  - Visual impairment [Unknown]
  - Abdominal discomfort [Unknown]
